FAERS Safety Report 16793322 (Version 2)
Quarter: 2019Q3

REPORT INFORMATION
  Report Type: Spontaneous
  Country: HU (occurrence: HU)
  Receive Date: 20190911
  Receipt Date: 20190914
  Transmission Date: 20191005
  Serious: Yes (Death, Life-Threatening, Hospitalization, Other)
  Sender: FDA-Public Use
  Company Number: HU-ABBVIE-19K-076-2919206-00

PATIENT
  Age: 67 Year
  Sex: Male
  Weight: 96 kg

DRUGS (8)
  1. HUMIRA [Suspect]
     Active Substance: ADALIMUMAB
     Route: 058
     Dates: start: 20190507, end: 20190603
  2. METHYLPREDNISOLONE. [Concomitant]
     Active Substance: METHYLPREDNISOLONE
     Indication: ULCERATIVE KERATITIS
  3. METHYLPREDNISOLONE. [Concomitant]
     Active Substance: METHYLPREDNISOLONE
     Indication: UVEITIS
  4. VENLAFAXINE [Concomitant]
     Active Substance: VENLAFAXINE HYDROCHLORIDE
     Indication: ANXIETY
     Dosage: 0.5 TABLET A DAY
  5. IBESARTAN [Concomitant]
     Indication: HYPERTENSION
  6. LEFLUNOMIDE. [Concomitant]
     Active Substance: LEFLUNOMIDE
     Indication: RHEUMATOID ARTHRITIS
  7. CLONAZEPAM. [Concomitant]
     Active Substance: CLONAZEPAM
     Indication: ANXIETY
  8. HUMIRA [Suspect]
     Active Substance: ADALIMUMAB
     Indication: RHEUMATOID ARTHRITIS
     Route: 058
     Dates: start: 20181203, end: 20190506

REACTIONS (9)
  - Cardiac arrest [Unknown]
  - Cerebral ischaemia [Unknown]
  - Malaise [Unknown]
  - Circulatory collapse [Fatal]
  - Coma [Unknown]
  - Sepsis [Unknown]
  - Brain injury [Unknown]
  - Brain hypoxia [Unknown]
  - Depressed mood [Unknown]

NARRATIVE: CASE EVENT DATE: 201906
